FAERS Safety Report 14030964 (Version 1)
Quarter: 2017Q4

REPORT INFORMATION
  Report Type: Spontaneous
  Country: US (occurrence: US)
  Receive Date: 20171002
  Receipt Date: 20171002
  Transmission Date: 20180321
  Serious: No
  Sender: FDA-Public Use
  Company Number: US-CELGENEUS-USA-20170908080

PATIENT

DRUGS (3)
  1. APREMILAST [Suspect]
     Active Substance: APREMILAST
     Indication: ALOPECIA UNIVERSALIS
  2. APREMILAST [Suspect]
     Active Substance: APREMILAST
     Indication: ALOPECIA AREATA
     Dosage: 60 MILLIGRAM
     Route: 048
     Dates: start: 201509
  3. APREMILAST [Suspect]
     Active Substance: APREMILAST
     Indication: OFF LABEL USE

REACTIONS (5)
  - Lethargy [Unknown]
  - Nausea [Unknown]
  - Headache [Unknown]
  - Diarrhoea [Unknown]
  - Drug ineffective [Unknown]
